FAERS Safety Report 15238565 (Version 1)
Quarter: 2018Q3

REPORT INFORMATION
  Report Type: Spontaneous
  Country: US (occurrence: US)
  Receive Date: 20180803
  Receipt Date: 20180803
  Transmission Date: 20181010
  Serious: No
  Sender: FDA-Public Use
  Company Number: US-IMPAX LABORATORIES, INC-2018-IPXL-01307

PATIENT
  Age: 73 Year
  Sex: Male
  Weight: 93 kg

DRUGS (7)
  1. VITAMIN B [Concomitant]
     Active Substance: VITAMIN B
     Indication: PRODUCT USED FOR UNKNOWN INDICATION
     Dosage: UNK
     Route: 065
  2. ALBENZA [Suspect]
     Active Substance: ALBENDAZOLE
     Dosage: 200 MG (1 TABLET ON FRIDAY AND SECOND TABLET ON SATURDAY AFTER 12 HOURS OF FIRST DOSE)
     Route: 048
     Dates: start: 20180420, end: 20180421
  3. VITAMIN D [Concomitant]
     Active Substance: CHOLECALCIFEROL
     Indication: PRODUCT USED FOR UNKNOWN INDICATION
     Dosage: UNK
     Route: 065
  4. ALBENZA [Suspect]
     Active Substance: ALBENDAZOLE
     Indication: ENTEROBIASIS
     Dosage: 200 MG (ONE TABLET TWICE A DAY FOR ONE DAY)
     Route: 048
     Dates: start: 20180321, end: 20180321
  5. ATORVASTATIN [Concomitant]
     Active Substance: ATORVASTATIN
     Indication: BLOOD CHOLESTEROL INCREASED
     Dosage: 40 MG, 0.5 TABLET, UNK
     Route: 065
  6. VITAMIN C [Concomitant]
     Active Substance: ASCORBIC ACID
     Indication: PRODUCT USED FOR UNKNOWN INDICATION
     Dosage: UNK
     Route: 065
  7. ALBENZA [Suspect]
     Active Substance: ALBENDAZOLE
     Indication: PRODUCT USE IN UNAPPROVED INDICATION
     Dosage: 200 MG (ONE TABLET TWICE A DAY FOR ONE DAY)
     Route: 048
     Dates: start: 20180406, end: 20180406

REACTIONS (1)
  - Drug ineffective for unapproved indication [Unknown]

NARRATIVE: CASE EVENT DATE: 20180321
